FAERS Safety Report 11616597 (Version 2)
Quarter: 2015Q4

REPORT INFORMATION
  Report Type: Spontaneous
  Country: AU (occurrence: AU)
  Receive Date: 20151009
  Receipt Date: 20151023
  Transmission Date: 20160304
  Serious: Yes (Hospitalization)
  Sender: FDA-Public Use
  Company Number: AU-BAYER-2015-425267

PATIENT
  Sex: Female

DRUGS (2)
  1. NEXIUM HP [Concomitant]
     Active Substance: AMOXICILLIN\CLARITHROMYCIN\ESOMEPRAZOLE
     Indication: HELICOBACTER GASTRITIS
     Dosage: UNK
  2. AVELOX [Suspect]
     Active Substance: MOXIFLOXACIN HYDROCHLORIDE
     Indication: HELICOBACTER GASTRITIS
     Dosage: UNK UNK, ONCE
     Dates: start: 20150916

REACTIONS (22)
  - Feeling hot [None]
  - Facial pain [None]
  - Dyspnoea [None]
  - Adverse reaction [None]
  - Tremor [None]
  - Nausea [None]
  - Dizziness [None]
  - Dyspnoea [None]
  - Heart rate increased [None]
  - Heart rate increased [None]
  - Cardiac disorder [None]
  - Skin warm [None]
  - Neuralgia [None]
  - Fall [None]
  - Memory impairment [None]
  - Dysgraphia [None]
  - Blood pressure increased [None]
  - Hyperhidrosis [None]
  - Speech disorder [None]
  - Hypersensitivity [None]
  - Malaise [None]
  - Dizziness [None]

NARRATIVE: CASE EVENT DATE: 20150916
